FAERS Safety Report 17212892 (Version 1)
Quarter: 2019Q4

REPORT INFORMATION
  Report Type: Spontaneous
  Country: SI (occurrence: SI)
  Receive Date: 20191230
  Receipt Date: 20191230
  Transmission Date: 20200122
  Serious: Yes (Other)
  Sender: FDA-Public Use
  Company Number: SI-TEVA-2019-SI-1158570

PATIENT
  Age: 73 Year
  Sex: Female

DRUGS (10)
  1. CONCOR 1.25 MG [Concomitant]
     Active Substance: BISOPROLOL FUMARATE
     Dosage: 1.25 MG
  2. ENDOXAN 1000 MG [Suspect]
     Active Substance: CYCLOPHOSPHAMIDE
     Indication: LUNG NEOPLASM MALIGNANT
     Dosage: 1000 MG POWDER FOR SOLUTION FOR INFUSION , 800 MG
     Route: 042
     Dates: start: 20191104, end: 20191104
  3. TULIP 20 MG [Concomitant]
     Dosage: 20 MG
  4. DOKSORUBICIN TEVA 2 MG/ML KONCENTRAT ZA RAZTOPINO ZA INFUNDIRANJE [Suspect]
     Active Substance: DOXORUBICIN HYDROCHLORIDE
     Indication: LUNG NEOPLASM MALIGNANT
     Dosage: 2MG/ML CONCENTRATE FOR SOLUTION FOR INFUSION , 40 MG
     Route: 042
     Dates: start: 20191104, end: 20191104
  5. KALCIJEV KARBONAT [Concomitant]
     Dosage: 1 GRAM
  6. ASPIRIN PROTECT 100MG [Concomitant]
     Dosage: 100 MG
  7. VINCRISTINE SULFATE. [Suspect]
     Active Substance: VINCRISTINE SULFATE
     Indication: LUNG NEOPLASM MALIGNANT
     Dosage: VINCRISTINE SULPHATE PHARMACHEMIE 2MG/ML SOLUTION FOR INJECTION , 2 MG
     Route: 042
     Dates: start: 20191104, end: 20191104
  8. PLIVIT D3 [Concomitant]
     Active Substance: CHOLECALCIFEROL
  9. ANALGIN 500 MG [Concomitant]
     Dosage: 500 MG
  10. NOLPAZA 20 MG [Concomitant]
     Dosage: 20 MG

REACTIONS (2)
  - Dyspnoea [Recovered/Resolved]
  - Hypoxia [Recovered/Resolved]

NARRATIVE: CASE EVENT DATE: 20191104
